FAERS Safety Report 6419134-5 (Version None)
Quarter: 2009Q4

REPORT INFORMATION
  Report Type: 
  Country: None (occurrence: None)
  Receive Date: 20091028
  Receipt Date: 20091028
  Transmission Date: 20100525
  Serious: Yes (Hospitalization)
  Sender: FDA-Public Use
  Company Number: None

PATIENT
  Age: 41 Year
  Sex: Female
  Weight: 61.2356 kg

DRUGS (1)
  1. VIVELLE-DOT [Suspect]
     Indication: HORMONE THERAPY
     Dosage: 2X WEEKLY
     Dates: start: 20050601, end: 20090401

REACTIONS (2)
  - CEREBROVASCULAR ACCIDENT [None]
  - FALL [None]
